FAERS Safety Report 5255650-X (Version None)
Quarter: 2007Q1

REPORT INFORMATION
  Report Type: 
  Country: None (occurrence: None)
  Receive Date: 20070305
  Receipt Date: 20070222
  Transmission Date: 20070707
  Serious: Yes (Death, Hospitalization)
  Sender: FDA-Public Use
  Company Number: US-PFIZER INC-2006002929

PATIENT
  Sex: Male
  Weight: 86.5 kg

DRUGS (22)
  1. SU-011,248 [Suspect]
     Indication: RENAL CELL CARCINOMA STAGE UNSPECIFIED
     Route: 048
     Dates: start: 20051208, end: 20060104
  2. PROMETHAZINE [Concomitant]
     Route: 061
     Dates: start: 20051201, end: 20060105
  3. CALCIUM ACETATE [Concomitant]
     Route: 048
     Dates: start: 20040301, end: 20060105
  4. SIMVASTATIN [Concomitant]
     Route: 048
     Dates: start: 20040701, end: 20060105
  5. ROSIGLITAZONE MALEATE [Concomitant]
     Route: 048
     Dates: start: 20031001, end: 20060105
  6. NIFEDIPINE [Concomitant]
     Route: 048
     Dates: start: 20030501, end: 20051229
  7. SERTRALINE HYDROCHLORIDE [Concomitant]
     Route: 048
     Dates: start: 20040801, end: 20051220
  8. PRAZOSIN HCL [Concomitant]
     Route: 048
     Dates: start: 20051001, end: 20051229
  9. EPOETIN [Concomitant]
     Route: 058
     Dates: start: 20040901, end: 20051201
  10. NPH INSULIN [Concomitant]
     Route: 058
     Dates: start: 20040501, end: 20060105
  11. ASPIRIN [Concomitant]
     Route: 048
     Dates: start: 20041101, end: 20060105
  12. SYNTHROID [Concomitant]
     Route: 048
     Dates: start: 20051220, end: 20060105
  13. IRON [Concomitant]
     Route: 048
     Dates: start: 20051220, end: 20060105
  14. CLONIDINE HCL [Concomitant]
     Route: 048
     Dates: start: 20051206, end: 20051229
  15. TYLENOL [Concomitant]
     Route: 048
     Dates: start: 20050101, end: 20060104
  16. BENADRYL [Concomitant]
     Route: 048
     Dates: start: 20051201, end: 20060104
  17. SODIUM BICARBONATE [Concomitant]
     Route: 048
     Dates: start: 20050407, end: 20060105
  18. REGULAR INSULIN [Concomitant]
     Route: 048
     Dates: start: 20050101, end: 20060105
  19. ACIPHEX [Concomitant]
     Route: 048
     Dates: start: 20050912, end: 20060105
  20. TYLENOL [Concomitant]
     Route: 048
     Dates: start: 20050817, end: 20060104
  21. OXYCODONE HCL [Concomitant]
     Route: 048
     Dates: start: 20050104, end: 20060105
  22. LOPERAMIDE HCL [Concomitant]
     Route: 048
     Dates: start: 20051115, end: 20060105

REACTIONS (1)
  - GASTROINTESTINAL HAEMORRHAGE [None]
